FAERS Safety Report 7814245-1 (Version None)
Quarter: 2011Q4

REPORT INFORMATION
  Report Type: 
  Country: None (occurrence: None)
  Receive Date: 20111014
  Receipt Date: 20111004
  Transmission Date: 20120403
  Serious: Yes (Hospitalization, Other)
  Sender: FDA-Public Use
  Company Number: JP-JNJFOC-20111004286

PATIENT
  Age: 81 Year
  Sex: Female

DRUGS (7)
  1. GALANTAMINE HYDROBROMIDE [Suspect]
     Indication: DEMENTIA ALZHEIMER'S TYPE
     Route: 048
  2. RABEPRAZOLE SODIUM [Concomitant]
     Route: 048
  3. DIART [Concomitant]
     Route: 048
  4. LORAZEPAM [Concomitant]
     Route: 048
  5. TAMBOCOR [Concomitant]
     Route: 048
  6. SYMMETREL [Concomitant]
     Route: 048
  7. TOLTERODINE TARTRATE [Concomitant]
     Route: 048

REACTIONS (3)
  - FALL [None]
  - DIZZINESS [None]
  - HOSPITALISATION [None]
